FAERS Safety Report 10615511 (Version 2)
Quarter: 2015Q1

REPORT INFORMATION
  Report Type: Spontaneous
  Country: US (occurrence: US)
  Receive Date: 20141201
  Receipt Date: 20150105
  Transmission Date: 20150720
  Serious: No
  Sender: FDA-Public Use
  Company Number: US-PFIZER INC-2014326860

PATIENT
  Age: 66 Year
  Sex: Male

DRUGS (1)
  1. SUTENT [Suspect]
     Active Substance: SUNITINIB MALATE
     Indication: RENAL CANCER
     Dosage: 50 MG, CYCLIC (1 QDX 28 DAYS X 14 DAYS OFF)
     Route: 048
     Dates: start: 20140730, end: 20141121

REACTIONS (2)
  - Disease progression [Unknown]
  - Renal cancer [Unknown]

NARRATIVE: CASE EVENT DATE: 2014
